FAERS Safety Report 8621123-7 (Version None)
Quarter: 2012Q3

REPORT INFORMATION
  Report Type: 
  Country: None (occurrence: None)
  Receive Date: 20120824
  Receipt Date: 20120808
  Transmission Date: 20120928
  Serious: Yes (Other)
  Sender: FDA-Public Use
  Company Number: FI-ROCHE-799484

PATIENT
  Sex: Female

DRUGS (1)
  1. MABTHERA [Suspect]
     Indication: IDIOPATHIC THROMBOCYTOPENIC PURPURA
     Dosage: (TOTALLY 4 INFUSIONS) LAST CYCLE ON 21/APR/2011
     Route: 042

REACTIONS (4)
  - ANTINUCLEAR ANTIBODY POSITIVE [None]
  - RASH [None]
  - SYSTEMIC LUPUS ERYTHEMATOSUS RASH [None]
  - HEPATIC ENZYME INCREASED [None]
